FAERS Safety Report 9104502 (Version 2)
Quarter: 2013Q3

REPORT INFORMATION
  Report Type: Report from Study
  Country: TR (occurrence: TR)
  Receive Date: 20130220
  Receipt Date: 20130720
  Transmission Date: 20140515
  Serious: Yes (Hospitalization)
  Sender: FDA-Public Use
  Company Number: TR-US-EMD SERONO, INC.-7194378

PATIENT
  Age: 16 Year
  Sex: Female
  Weight: 69 kg

DRUGS (1)
  1. REBIF [Suspect]
     Indication: MULTIPLE SCLEROSIS
     Route: 058
     Dates: start: 20111204, end: 20130110

REACTIONS (2)
  - Uhthoff^s phenomenon [Recovering/Resolving]
  - Multiple sclerosis relapse [Recovered/Resolved with Sequelae]
